FAERS Safety Report 7470027-4 (Version None)
Quarter: 2011Q2

REPORT INFORMATION
  Report Type: 
  Country: None (occurrence: None)
  Receive Date: 20110510
  Receipt Date: 20110506
  Transmission Date: 20111010
  Serious: Yes (Other)
  Sender: FDA-Public Use
  Company Number: US-ROCHE-775961

PATIENT
  Sex: Female

DRUGS (9)
  1. LISINOPRIL [Concomitant]
  2. RIBAVARIN [Suspect]
     Indication: HEPATITIS C
     Dosage: WEEK 22
     Route: 065
     Dates: start: 20101210
  3. PEGINTERFERON ALFA-2A [Suspect]
     Indication: HEPATITIS C
     Dosage: FORM: PFS, WEEK 22
     Route: 065
     Dates: start: 20101210
  4. HYDROCODONE BITARTRATE [Concomitant]
  5. CLONAZEPAM [Suspect]
     Route: 065
  6. ZANTAC [Concomitant]
  7. NEURONTIN [Concomitant]
  8. FOSAMAX [Concomitant]
  9. PRISTIQ [Concomitant]

REACTIONS (7)
  - LUNG INFECTION [None]
  - STOMATITIS [None]
  - MALAISE [None]
  - CHOKING [None]
  - DECREASED APPETITE [None]
  - ASTHENIA [None]
  - URINARY INCONTINENCE [None]
